FAERS Safety Report 22283254 (Version 1)
Quarter: 2023Q2

REPORT INFORMATION
  Report Type: Spontaneous
  Country: JP (occurrence: JP)
  Receive Date: 20230504
  Receipt Date: 20230504
  Transmission Date: 20230722
  Serious: Yes (Death, Hospitalization, Other)
  Sender: FDA-Public Use
  Company Number: JP-AJANTA-2023AJA00068

PATIENT
  Age: 68 Year
  Sex: Male

DRUGS (12)
  1. CLARITHROMYCIN [Suspect]
     Active Substance: CLARITHROMYCIN
     Indication: Mycobacterium avium complex infection
  2. RIFAMPIN [Suspect]
     Active Substance: RIFAMPIN
     Indication: Mycobacterium avium complex infection
  3. ETHAMBUTOL [Suspect]
     Active Substance: ETHAMBUTOL HYDROCHLORIDE
     Indication: Mycobacterium avium complex infection
  4. STREPTOMYCIN [Suspect]
     Active Substance: STREPTOMYCIN SULFATE
     Indication: Haemoptysis
     Route: 030
  5. STREPTOMYCIN [Suspect]
     Active Substance: STREPTOMYCIN SULFATE
     Route: 030
  6. AMIKACIN [Suspect]
     Active Substance: AMIKACIN
     Indication: Pleurisy bacterial
     Route: 042
  7. SITAFLOXACIN [Suspect]
     Active Substance: SITAFLOXACIN
     Indication: Pleurisy bacterial
  8. LASCUFLOXACIN [Suspect]
     Active Substance: LASCUFLOXACIN
     Indication: Pneumonia
     Route: 048
  9. AMPICILLIN SODIUM\SULBACTAM SODIUM [Suspect]
     Active Substance: AMPICILLIN SODIUM\SULBACTAM SODIUM
     Indication: Pneumonia
  10. PIPERACILLIN AND TAZOBACTAM [Suspect]
     Active Substance: PIPERACILLIN SODIUM\TAZOBACTAM SODIUM
     Indication: Pneumonia
  11. METHYLPREDNISOLONE [Suspect]
     Active Substance: METHYLPREDNISOLONE
     Indication: Pneumonia
  12. FUROSEMIDE [Suspect]
     Active Substance: FUROSEMIDE
     Indication: Brain natriuretic peptide

REACTIONS (4)
  - Respiratory failure [Fatal]
  - Pneumonia [Fatal]
  - Altered state of consciousness [Fatal]
  - Pleurisy bacterial [Fatal]
